FAERS Safety Report 12894644 (Version 1)
Quarter: 2016Q4

REPORT INFORMATION
  Report Type: Spontaneous
  Country: None (occurrence: US)
  Receive Date: 20161028
  Receipt Date: 20161028
  Transmission Date: 20170207
  Serious: No
  Sender: FDA-Public Use
  Company Number: US-MEDAC PHARMA, INC.-1059028

PATIENT
  Age: 71 Year
  Sex: Female
  Weight: 77.27 kg

DRUGS (11)
  1. GLIPIZIDE. [Concomitant]
     Active Substance: GLIPIZIDE
  2. APRISO [Concomitant]
     Active Substance: MESALAMINE
  3. PREDNISONE. [Concomitant]
     Active Substance: PREDNISONE
  4. PANTOPRAZOLE SODIUM. [Concomitant]
     Active Substance: PANTOPRAZOLE SODIUM
  5. ESCITALOPRAM [Concomitant]
     Active Substance: ESCITALOPRAM OXALATE
  6. RASUVO [Suspect]
     Active Substance: METHOTREXATE SODIUM
     Indication: FIBROMYALGIA
     Route: 058
     Dates: start: 201608
  7. SIMPONI [Concomitant]
     Active Substance: GOLIMUMAB
  8. ADVAIR DISKUS [Concomitant]
     Active Substance: FLUTICASONE PROPIONATE\SALMETEROL XINAFOATE
  9. LISINOPRIL. [Concomitant]
     Active Substance: LISINOPRIL
  10. PRAVASTATIN. [Concomitant]
     Active Substance: PRAVASTATIN
  11. ALPRAZOLAM. [Concomitant]
     Active Substance: ALPRAZOLAM

REACTIONS (5)
  - Contusion [Not Recovered/Not Resolved]
  - Injection site erythema [Recovering/Resolving]
  - Injection site warmth [Recovering/Resolving]
  - Rash pruritic [Not Recovered/Not Resolved]
  - Dry skin [Not Recovered/Not Resolved]

NARRATIVE: CASE EVENT DATE: 201608
